FAERS Safety Report 12191769 (Version 2)
Quarter: 2016Q2

REPORT INFORMATION
  Report Type: Spontaneous
  Country: US (occurrence: US)
  Receive Date: 20160318
  Receipt Date: 20160630
  Transmission Date: 20160815
  Serious: No
  Sender: FDA-Public Use
  Company Number: US-PFIZER INC-2016138474

PATIENT
  Age: 61 Year
  Sex: Female

DRUGS (15)
  1. CYMBALTA [Concomitant]
     Active Substance: DULOXETINE HYDROCHLORIDE
     Dosage: 60 MG, DAILY
     Route: 048
     Dates: start: 20160524
  2. LEVEMIR [Concomitant]
     Active Substance: INSULIN DETEMIR
     Dosage: 0.2 ML, 1X/DAY, ((20 UNITS) AT BEDTIME)(100 UNIT/ML (3ML))
     Route: 058
     Dates: start: 20160308
  3. HUMALOG [Concomitant]
     Active Substance: INSULIN LISPRO
     Dosage: UNK UNK, AS NEEDED (100 UNIT/ML INPN) (QID PER SLIDING SCALE; ON AVERAGE 10-12 UNITS TOTAL DAILY)
     Dates: start: 20150319
  4. GLUCOPHAGE [Concomitant]
     Active Substance: METFORMIN HYDROCHLORIDE
     Dosage: 500 MG, 2X/DAY
     Route: 048
     Dates: start: 20160307
  5. LYRICA [Suspect]
     Active Substance: PREGABALIN
     Dosage: 50 MG, 2X/DAY
     Route: 048
     Dates: start: 20160607
  6. ATIVAN [Concomitant]
     Active Substance: LORAZEPAM
     Dosage: 1 MG, AS NEEDED (THREE TIMES A DAY)
     Dates: start: 20160524
  7. REQUIP [Concomitant]
     Active Substance: ROPINIROLE HYDROCHLORIDE
     Dosage: 1 MG, 1X/DAY, (QHS)
     Route: 048
     Dates: start: 20160524
  8. LIRAGLUTIDE [Concomitant]
     Active Substance: LIRAGLUTIDE
     Dosage: 0.6 MG, DAILY (0.6 MG/0.1 ML (18 MG/3 ML)) (0.1 ML)
     Route: 058
     Dates: start: 20160607
  9. ZESTRIL [Concomitant]
     Active Substance: LISINOPRIL
     Dosage: 20 MG, DAILY
     Route: 048
     Dates: start: 20160307
  10. MAGNESIUM OXIDE. [Concomitant]
     Active Substance: MAGNESIUM OXIDE
     Dosage: 250 MG, DAILY
     Route: 048
     Dates: start: 20140528
  11. NORVASC [Concomitant]
     Active Substance: AMLODIPINE BESYLATE
     Dosage: 5 MG, DAILY
     Route: 048
  12. FARXIGA [Concomitant]
     Active Substance: DAPAGLIFLOZIN PROPANEDIOL
     Dosage: 10 MG, DAILY
     Route: 048
     Dates: start: 20160307
  13. PRINIVIL [Concomitant]
     Active Substance: LISINOPRIL
     Dosage: 20 MG, DAILY
     Route: 048
     Dates: start: 20160307
  14. DESYREL [Concomitant]
     Active Substance: TRAZODONE HYDROCHLORIDE
     Dosage: 150 MG, 1X/DAY, (AT BEDTIME)
     Route: 048
     Dates: start: 20160524
  15. MOBIC [Concomitant]
     Active Substance: MELOXICAM
     Dosage: 15 MG, 2X/DAY (2 DAILY)
     Route: 048
     Dates: start: 20160607

REACTIONS (5)
  - Limb discomfort [Unknown]
  - Pain [Unknown]
  - Restless legs syndrome [Unknown]
  - Restlessness [Unknown]
  - Dyskinesia [Unknown]
